FAERS Safety Report 6412286-2 (Version None)
Quarter: 2009Q4

REPORT INFORMATION
  Report Type: 
  Country: None (occurrence: None)
  Receive Date: 20091023
  Receipt Date: 20091015
  Transmission Date: 20100525
  Serious: Yes (Other)
  Sender: FDA-Public Use
  Company Number: MX-AMGEN-US370426

PATIENT
  Sex: Male
  Weight: 117 kg

DRUGS (3)
  1. ETANERCEPT [Suspect]
     Indication: PSORIASIS
     Dosage: BLINDED DOSE; 1-2 DOSES PER WEEK
     Route: 058
     Dates: start: 20090629
  2. ACETYLSALICYLIC ACID [Concomitant]
     Indication: PROPHYLAXIS
     Dosage: UNSPECIFIED
     Route: 048
     Dates: start: 20090821
  3. ENALAPRIL MALEATE [Concomitant]
     Indication: HYPERTENSION
     Dosage: UNSPECIFIED
     Route: 065
     Dates: start: 20090821

REACTIONS (2)
  - MALE SEXUAL DYSFUNCTION [None]
  - MUSCLE SPASMS [None]
